FAERS Safety Report 8425917-2 (Version None)
Quarter: 2012Q2

REPORT INFORMATION
  Report Type: 
  Country: None (occurrence: None)
  Receive Date: 20120601
  Receipt Date: 20120522
  Transmission Date: 20120825
  Serious: Yes (Hospitalization)
  Sender: FDA-Public Use
  Company Number: 2012SP023495

PATIENT
  Age: 76 Year
  Sex: Female
  Weight: 75 kg

DRUGS (7)
  1. RIBAVIRIN [Suspect]
     Indication: PRODUCT USED FOR UNKNOWN INDICATION
     Dosage: 1000 MG;QD;  800 MG;QD;
     Dates: start: 20120229, end: 20120425
  2. LEVOTIROXIN [Concomitant]
  3. CARBAMAZEPINE [Concomitant]
  4. FUROSEMIDE [Concomitant]
  5. FOLIC ACID [Concomitant]
  6. PEG-INTRON [Suspect]
     Indication: HEPATITIS C
     Dosage: 100 MCG;QW;
     Dates: start: 20120229, end: 20120425
  7. CALCIUM CARBONATE [Concomitant]

REACTIONS (6)
  - ANAEMIA [None]
  - HAEMODIALYSIS [None]
  - CHEST PAIN [None]
  - PYREXIA [None]
  - BLOOD PRESSURE ABNORMAL [None]
  - URINARY TRACT INFECTION [None]
